FAERS Safety Report 13677649 (Version 3)
Quarter: 2020Q2

REPORT INFORMATION
  Report Type: Spontaneous
  Country: SG (occurrence: SG)
  Receive Date: 20170622
  Receipt Date: 20200423
  Transmission Date: 20200713
  Serious: Yes (Life-Threatening, Hospitalization, Other)
  Sender: FDA-Public Use
  Company Number: SG-PFIZER INC-2015354001

PATIENT
  Age: 2 Month
  Weight: 4.8 kg

DRUGS (1)
  1. BUPIVACAINE. [Suspect]
     Active Substance: BUPIVACAINE
     Indication: LOCAL ANAESTHESIA
     Dosage: 6 ML OF 0.17% (GIVEN IN DIVIDED DOSES OVER 3 MINUTES)
     Route: 040

REACTIONS (3)
  - Anaesthetic complication [Recovered/Resolved]
  - Generalised tonic-clonic seizure [Recovered/Resolved]
  - Unresponsive to stimuli [Recovered/Resolved]
